FAERS Safety Report 18967902 (Version 4)
Quarter: 2022Q3

REPORT INFORMATION
  Report Type: Report from Study
  Country: US (occurrence: US)
  Receive Date: 20210304
  Receipt Date: 20220901
  Transmission Date: 20221026
  Serious: Yes (Hospitalization)
  Sender: FDA-Public Use
  Company Number: US-BAUSCH-BL-2020-033894

PATIENT
  Age: 64 Year
  Sex: Female

DRUGS (3)
  1. SILIQ [Suspect]
     Active Substance: BRODALUMAB
     Indication: Psoriasis
     Route: 058
     Dates: start: 2017
  2. SILIQ [Suspect]
     Active Substance: BRODALUMAB
     Route: 058
     Dates: end: 202010
  3. SILIQ [Suspect]
     Active Substance: BRODALUMAB
     Route: 058
     Dates: end: 202101

REACTIONS (5)
  - Psoriasis [Not Recovered/Not Resolved]
  - Gait inability [Recovering/Resolving]
  - Skin infection [Not Recovered/Not Resolved]
  - Asthenia [Not Recovered/Not Resolved]
  - Product use issue [Unknown]

NARRATIVE: CASE EVENT DATE: 20201101
